FAERS Safety Report 7309973-0 (Version None)
Quarter: 2011Q1

REPORT INFORMATION
  Report Type: 
  Country: None (occurrence: None)
  Receive Date: 20110224
  Receipt Date: 20110210
  Transmission Date: 20110831
  Serious: Yes (Other)
  Sender: FDA-Public Use
  Company Number: DE-RANBAXY-2011RR-41940

PATIENT
  Age: 30 Year
  Sex: Female

DRUGS (6)
  1. VOMACUR [Suspect]
     Indication: PRODUCT USED FOR UNKNOWN INDICATION
     Dosage: 50 MG, UNK
     Route: 048
  2. AMLOBETA [Suspect]
     Dosage: 5 MG, UNK
     Route: 048
  3. CO-DIOVAN [Suspect]
     Indication: PRODUCT USED FOR UNKNOWN INDICATION
     Route: 048
  4. MIRTAZAPINE [Suspect]
     Dosage: 45 MG, UNK
     Route: 048
  5. IBUPROFEN [Suspect]
     Indication: PRODUCT USED FOR UNKNOWN INDICATION
     Dosage: 400 MG, UNK
     Route: 048
  6. DOMINAL FORTE [Suspect]
     Dosage: 20 MG, UNK
     Route: 048

REACTIONS (3)
  - COMA [None]
  - OVERDOSE [None]
  - HYPOTENSION [None]
